FAERS Safety Report 4642740-5 (Version None)
Quarter: 2005Q2

REPORT INFORMATION
  Report Type: 
  Country: None (occurrence: None)
  Receive Date: 20050420
  Receipt Date: 20050331
  Transmission Date: 20051028
  Serious: Yes (Hospitalization)
  Sender: FDA-Public Use
  Company Number: FR_050406159

PATIENT
  Age: 48 Year
  Sex: Male

DRUGS (6)
  1. GEMZAR [Suspect]
     Indication: NON-SMALL CELL LUNG CANCER
     Dosage: 1250 MG/M2/2 OTHER
     Dates: start: 20050301
  2. CISPLATIN [Concomitant]
  3. DI-ANTALVIC [Concomitant]
  4. LEXOMIL (BROMAZEPAM) [Concomitant]
  5. NEXIUM [Concomitant]
  6. ALUMINUM HYDROXIDE AND MAGNESIUM TRISILICATE [Concomitant]

REACTIONS (2)
  - ARTERIAL THROMBOSIS LIMB [None]
  - PERIPHERAL ISCHAEMIA [None]
